FAERS Safety Report 8536522-1 (Version None)
Quarter: 2012Q3

REPORT INFORMATION
  Report Type: 
  Country: None (occurrence: None)
  Receive Date: 20120718
  Receipt Date: 20120718
  Transmission Date: 20120928
  Serious: No
  Sender: FDA-Public Use
  Company Number: None

PATIENT
  Age: 54 Year
  Sex: Male
  Weight: 74.8435 kg

DRUGS (1)
  1. PROPECIA [Suspect]
     Indication: ANDROGENETIC ALOPECIA
     Dosage: 1MG DAILY PO
     Route: 048

REACTIONS (8)
  - SEMEN ANALYSIS ABNORMAL [None]
  - ERECTILE DYSFUNCTION [None]
  - FLAT AFFECT [None]
  - DEPRESSION [None]
  - LIBIDO DECREASED [None]
  - ANORGASMIA [None]
  - MOOD ALTERED [None]
  - SOCIAL AVOIDANT BEHAVIOUR [None]
